FAERS Safety Report 21172290 (Version 1)
Quarter: 2022Q3

REPORT INFORMATION
  Report Type: Spontaneous
  Country: US (occurrence: None)
  Receive Date: 20220804
  Receipt Date: 20220804
  Transmission Date: 20221027
  Serious: Yes (Hospitalization, Other)
  Sender: FDA-Public Use
  Company Number: US-MLMSERVICE-20161011-0454275-1

PATIENT
  Age: 32 Year
  Sex: Female

DRUGS (3)
  1. CAPREOMYCIN [Interacting]
     Active Substance: CAPREOMYCIN
     Indication: Tuberculosis
  2. LEVOFLOXACIN [Interacting]
     Active Substance: LEVOFLOXACIN
     Indication: Tuberculosis
  3. ETHAMBUTOL [Interacting]
     Active Substance: ETHAMBUTOL HYDROCHLORIDE
     Indication: Tuberculosis

REACTIONS (3)
  - Drug interaction [Recovered/Resolved]
  - Hepatitis B reactivation [Recovered/Resolved]
  - Off label use [Unknown]
